FAERS Safety Report 7760546-5 (Version None)
Quarter: 2011Q3

REPORT INFORMATION
  Report Type: 
  Country: None (occurrence: None)
  Receive Date: 20110919
  Receipt Date: 20110906
  Transmission Date: 20111222
  Serious: Yes (Hospitalization)
  Sender: FDA-Public Use
  Company Number: JP-ELI_LILLY_AND_COMPANY-JP201108006262

PATIENT
  Sex: Male
  Weight: 60.8 kg

DRUGS (8)
  1. SENNOSIDE [Concomitant]
     Indication: CONSTIPATION
     Dosage: 12 MG, UNK
     Route: 048
  2. CADEMESIN [Concomitant]
     Indication: HYPERTENSION
     Dosage: 4 MG, UNK
     Route: 048
  3. AMLODIPINE [Concomitant]
     Indication: HYPERTENSION
     Dosage: 5 MG, UNK
     Route: 048
  4. GEMZAR [Suspect]
     Dosage: 1300 MG, UNK
     Route: 042
     Dates: start: 20110810, end: 20110810
  5. GEMZAR [Suspect]
     Indication: PANCREATIC CARCINOMA STAGE IV
     Dosage: 1600 MG, UNK
     Route: 042
     Dates: start: 20110727, end: 20110809
  6. CANDESARTAN CILEXETIL [Concomitant]
     Indication: HYPERTENSION
     Dosage: 8 MG, UNK
     Route: 048
  7. PLAVIX [Concomitant]
     Indication: LACUNAR INFARCTION
     Dosage: 37.5 MG, UNK
     Route: 048
  8. LAC B [Concomitant]
     Indication: CONSTIPATION
     Dosage: 3 G, UNK
     Route: 048

REACTIONS (4)
  - ABDOMINAL DISCOMFORT [None]
  - RENAL INFARCT [None]
  - PLATELET COUNT DECREASED [None]
  - CEREBRAL INFARCTION [None]
